FAERS Safety Report 9867652 (Version 2)
Quarter: 2019Q1

REPORT INFORMATION
  Report Type: Spontaneous
  Country: JP (occurrence: JP)
  Receive Date: 20140204
  Receipt Date: 20190222
  Transmission Date: 20190418
  Serious: Yes (Other)
  Sender: FDA-Public Use
  Company Number: JP-PFIZER INC-2014028058

PATIENT
  Age: 46 Year
  Sex: Male
  Weight: 61 kg

DRUGS (4)
  1. FLUOROURACIL. [Suspect]
     Active Substance: FLUOROURACIL
     Dosage: 3500 MG, CYCLIC (10 CYCLES)
     Route: 041
     Dates: start: 200806, end: 200812
  2. FLUOROURACIL. [Suspect]
     Active Substance: FLUOROURACIL
     Indication: COLON CANCER METASTATIC
     Dosage: 650 MG, CYCLIC (10 CYCLES)
     Route: 042
     Dates: start: 200806, end: 200812
  3. OXALIPLATIN. [Suspect]
     Active Substance: OXALIPLATIN
     Indication: COLON CANCER METASTATIC
     Dosage: 140 MG, CYCLIC (10 CYCLES)
     Route: 041
     Dates: start: 200806, end: 200812
  4. LEUCOVORIN. [Suspect]
     Active Substance: LEUCOVORIN
     Indication: COLON CANCER METASTATIC
     Dosage: 340 MG, CYCLIC (10 CYCLES)
     Route: 041
     Dates: start: 200806, end: 200812

REACTIONS (6)
  - Gastric varices [Unknown]
  - Venoocclusive liver disease [Unknown]
  - Splenomegaly [Unknown]
  - Thrombocytopenia [Unknown]
  - Portal hypertension [Unknown]
  - Varices oesophageal [Unknown]
